FAERS Safety Report 8661612 (Version 2)
Quarter: 2012Q4

REPORT INFORMATION
  Report Type: Spontaneous
  Country: US (occurrence: None)
  Receive Date: 20120626
  Receipt Date: 20120912
  Transmission Date: 20130627
  Serious: Yes (Death, Other)
  Sender: FDA-Public Use
  Company Number: 2011MA015542

PATIENT
  Sex: Male
  Weight: 139.26 kg

DRUGS (15)
  1. METOCLOPRAMIDE [Suspect]
     Indication: DIABETIC GASTROPARESIS
     Dosage: AC + HS;PO
     Route: 048
     Dates: start: 2007, end: 200912
  2. DARVOCET-N [Concomitant]
  3. DIATX ZN [Concomitant]
  4. DOCUSATE SODIUM [Concomitant]
  5. EFFEXOR [Concomitant]
  6. FLUDROCORTISONE ACETATE [Concomitant]
  7. GABAPENTIN [Concomitant]
  8. SENSIPAR [Concomitant]
  9. HECTORAL [Concomitant]
  10. LISINOPRIL [Concomitant]
  11. PREVACID [Concomitant]
  12. RENVELA [Concomitant]
  13. BACTRIM DS [Concomitant]
  14. DOMPERIDONE [Concomitant]
  15. OMEPRAZOLE [Concomitant]

REACTIONS (7)
  - Dystonia [None]
  - Economic problem [None]
  - Emotional disorder [None]
  - Hordeolum [None]
  - Hordeolum [None]
  - Ascites [None]
  - Splenomegaly [None]
